FAERS Safety Report 8796616 (Version 3)
Quarter: 2012Q4

REPORT INFORMATION
  Report Type: 
  Country: JP (occurrence: JP)
  Receive Date: 20120920
  Receipt Date: 20121116
  Transmission Date: 20130627
  Serious: Yes (Hospitalization)
  Sender: FDA-Public Use
  Company Number: JP-ROCHE-1124202

PATIENT
  Age: 4 Year
  Sex: Female
  Weight: 16 kg

DRUGS (8)
  1. ACTEMRA [Suspect]
     Indication: JUVENILE ARTHRITIS
     Route: 041
     Dates: start: 20110623, end: 20120620
  2. ACTEMRA [Suspect]
     Indication: JUVENILE ARTHRITIS
     Route: 041
  3. ACTEMRA [Suspect]
     Indication: JUVENILE ARTHRITIS
     Route: 041
     Dates: start: 20120824
  4. ACTEMRA [Suspect]
     Indication: JUVENILE ARTHRITIS
     Route: 041
     Dates: start: 20121024
  5. BIOFERMIN [Concomitant]
     Indication: CONSTIPATION
     Route: 048
     Dates: start: 20110610
  6. SELBEX [Concomitant]
     Indication: PROPHYLAXIS
     Route: 048
     Dates: start: 20110531
  7. PREDONINE [Concomitant]
     Indication: JUVENILE ARTHRITIS
     Route: 048
     Dates: start: 20110624
  8. SIMPLE EYE OINTMENT [Concomitant]
     Route: 048
     Dates: start: 20110624

REACTIONS (1)
  - Arthritis [Not Recovered/Not Resolved]
